FAERS Safety Report 4941569-8 (Version None)
Quarter: 2006Q1

REPORT INFORMATION
  Report Type: 
  Country: None (occurrence: None)
  Receive Date: 20060307
  Receipt Date: 20060224
  Transmission Date: 20060701
  Serious: Yes (Other)
  Sender: FDA-Public Use
  Company Number: HQWYE636503FEB06

PATIENT
  Age: 75 Year
  Sex: Female

DRUGS (10)
  1. ANCARON (AMIODARONE, TABLET) [Suspect]
     Indication: ARRHYTHMIA
     Dosage: SEE IMAGE
     Route: 048
     Dates: start: 20060105, end: 20060118
  2. ANCARON (AMIODARONE, TABLET) [Suspect]
     Indication: ARRHYTHMIA
     Dosage: SEE IMAGE
     Route: 048
     Dates: start: 20060119, end: 20060123
  3. RABEPRAZOLE SODIUM [Suspect]
     Dosage: ORAL
     Route: 048
  4. MUCOSTA (REBAMIPIDE) [Concomitant]
  5. LASIX [Concomitant]
  6. ALDACTONE [Concomitant]
  7. AMOBAN (ZOPICLONE) [Concomitant]
  8. TORSEMIDE [Concomitant]
  9. WARFARIN SODIUM [Concomitant]
  10. BAYASPIRINA (ACETYLSALICYLIC ACID) [Concomitant]

REACTIONS (2)
  - NEUTROPHIL COUNT DECREASED [None]
  - WHITE BLOOD CELL COUNT DECREASED [None]
